FAERS Safety Report 11983590 (Version 1)
Quarter: 2016Q1

REPORT INFORMATION
  Report Type: Spontaneous
  Country: FR (occurrence: FR)
  Receive Date: 20160201
  Receipt Date: 20160201
  Transmission Date: 20160526
  Serious: Yes (Other)
  Sender: FDA-Public Use
  Company Number: FR-PFIZER INC-2016041278

PATIENT
  Age: 83 Year
  Sex: Female

DRUGS (21)
  1. NEURONTIN [Suspect]
     Active Substance: GABAPENTIN
     Indication: POLYMYALGIA RHEUMATICA
     Dosage: 600 MG, 3X/DAY
     Route: 048
     Dates: start: 20100118
  2. LAMALINE [Suspect]
     Active Substance: ACETAMINOPHEN\CAFFEINE\OPIUM
     Indication: ANALGESIC THERAPY
     Dosage: UNK
     Route: 048
     Dates: start: 201305, end: 201511
  3. PREDNISONE. [Suspect]
     Active Substance: PREDNISONE
     Indication: ANALGESIC THERAPY
     Dosage: 20 MG, UNK
     Route: 048
     Dates: start: 201102, end: 201103
  4. PREDNISONE. [Suspect]
     Active Substance: PREDNISONE
     Dosage: 15 MG, MONTHLY
     Route: 048
     Dates: start: 201104, end: 201105
  5. PREDNISONE. [Suspect]
     Active Substance: PREDNISONE
     Dosage: 4 MG, MONTHLY
     Route: 048
     Dates: start: 201201, end: 201206
  6. PREDNISONE. [Suspect]
     Active Substance: PREDNISONE
     Dosage: 2 MG, MONTHLY
     Route: 048
     Dates: start: 201308, end: 201309
  7. PREDNISONE. [Suspect]
     Active Substance: PREDNISONE
     Dosage: 1 MG, MONTHLY
     Route: 048
     Dates: start: 201309, end: 201310
  8. PREDNISONE. [Suspect]
     Active Substance: PREDNISONE
     Dosage: 17.5 MG, MONTHLY
     Route: 048
     Dates: start: 201103, end: 201104
  9. PREDNISONE. [Suspect]
     Active Substance: PREDNISONE
     Dosage: 12.5 MG, MONTHLY
     Route: 048
     Dates: start: 201105, end: 201107
  10. PREDNISONE. [Suspect]
     Active Substance: PREDNISONE
     Dosage: 9 MG, MONTHLY
     Route: 048
     Dates: start: 201108, end: 201109
  11. INEXIUM /01479302/ [Suspect]
     Active Substance: ESOMEPRAZOLE MAGNESIUM
     Indication: GASTROOESOPHAGEAL REFLUX PROPHYLAXIS
     Dosage: 20 MG, DAILY
     Route: 048
     Dates: start: 201102
  12. PREDNISONE. [Suspect]
     Active Substance: PREDNISONE
     Dosage: 7 MG, MONTHLY
     Route: 048
     Dates: start: 201110, end: 201111
  13. PREVISCAN /00261401/ [Suspect]
     Active Substance: PENTOXIFYLLINE
     Indication: THROMBOSIS PROPHYLAXIS
     Dosage: UNK
     Route: 048
     Dates: start: 201102
  14. PREDNISONE. [Suspect]
     Active Substance: PREDNISONE
     Dosage: 10 MG, MONTHLY
     Route: 048
     Dates: start: 201107, end: 201108
  15. PREDNISONE. [Suspect]
     Active Substance: PREDNISONE
     Dosage: 5 MG, MONTHLY
     Route: 048
     Dates: start: 201206, end: 201306
  16. PREDNISONE. [Suspect]
     Active Substance: PREDNISONE
     Dosage: 4 MG, MONTHLY
     Route: 048
     Dates: start: 201306, end: 201307
  17. PREDNISONE. [Suspect]
     Active Substance: PREDNISONE
     Dosage: 5 MG, MONTHLY
     Route: 048
     Dates: start: 201112, end: 201201
  18. PREDNISONE. [Suspect]
     Active Substance: PREDNISONE
     Dosage: 8 MG, MONTHLY
     Route: 048
     Dates: start: 201109, end: 201110
  19. DOLIPRANE [Suspect]
     Active Substance: ACETAMINOPHEN
     Indication: ANALGESIC THERAPY
     Dosage: 1 G, 2X/DAY
     Route: 048
  20. PREDNISONE. [Suspect]
     Active Substance: PREDNISONE
     Dosage: 6 MG, MONTHLY
     Route: 048
     Dates: start: 201111, end: 201112
  21. PREDNISONE. [Suspect]
     Active Substance: PREDNISONE
     Dosage: 3 MG, MONTHLY
     Route: 048
     Dates: start: 201307, end: 201308

REACTIONS (2)
  - Off label use [Unknown]
  - Neutropenia [Not Recovered/Not Resolved]

NARRATIVE: CASE EVENT DATE: 2010
